FAERS Safety Report 6504435-2 (Version None)
Quarter: 2009Q4

REPORT INFORMATION
  Report Type: 
  Country: None (occurrence: None)
  Receive Date: 20091217
  Receipt Date: 20091210
  Transmission Date: 20100525
  Serious: Yes (Death, Hospitalization)
  Sender: FDA-Public Use
  Company Number: BR-ABBOTT-09P-020-0591427-00

PATIENT
  Sex: Male
  Weight: 68 kg

DRUGS (7)
  1. KALETRA [Suspect]
     Indication: HIV INFECTION
     Dosage: 800MG/200MG 12-12HRS
     Route: 048
     Dates: start: 20090709, end: 20090806
  2. KALETRA [Suspect]
     Indication: TUBERCULOSIS
  3. DIDANOSINE [Concomitant]
     Indication: HIV INFECTION
     Dates: start: 20090709, end: 20090806
  4. RIFAMPICIN [Concomitant]
     Indication: TUBERCULOSIS
     Dates: start: 20090611, end: 20090806
  5. ISONIAZID [Concomitant]
     Indication: TUBERCULOSIS
     Dates: start: 20090611, end: 20090806
  6. PYRAZINAMIDE [Concomitant]
     Indication: TUBERCULOSIS
     Dates: start: 20090611, end: 20090806
  7. AZITHROMYCIN + 3TC [Concomitant]
     Indication: DRUG USE FOR UNKNOWN INDICATION
     Dosage: 300 MG/150MG 1 TAB/12-12HRS
     Route: 048

REACTIONS (2)
  - ANAPHYLACTIC SHOCK [None]
  - OEDEMATOUS PANCREATITIS [None]
